FAERS Safety Report 16121435 (Version 1)
Quarter: 2019Q1

REPORT INFORMATION
  Report Type: Spontaneous
  Country: CN (occurrence: CN)
  Receive Date: 20190327
  Receipt Date: 20190327
  Transmission Date: 20190418
  Serious: Yes (Other)
  Sender: FDA-Public Use
  Company Number: CN-BAXTER-2019BAX006073

PATIENT
  Age: 61 Year
  Sex: Female
  Weight: 49 kg

DRUGS (12)
  1. PHARMORUBICIN [Suspect]
     Active Substance: EPIRUBICIN
     Dosage: DOSE RE-INTRODUCED, PHARMORUBICIN + NS
     Route: 041
  2. ENDOXAN [Suspect]
     Active Substance: CYCLOPHOSPHAMIDE
     Indication: BREAST CANCER
     Dosage: 1ST CHEMOTHERAPY, ENDOXAN + NS
     Route: 042
  3. 0.9% SODIUM CHLORIDE INJECTION [Suspect]
     Active Substance: SODIUM CHLORIDE
     Dosage: PHARMORUBICIN 110 MG + NS 100 ML
     Route: 041
     Dates: start: 20190202, end: 20190202
  4. 0.9% SODIUM CHLORIDE INJECTION [Suspect]
     Active Substance: SODIUM CHLORIDE
     Dosage: CYCLOPHOSPHAMIDE FOR INJECTION (ENDOXAN CTX) 750 MG + NS 35 ML
     Route: 042
     Dates: start: 20190202, end: 20190202
  5. PHARMORUBICIN [Suspect]
     Active Substance: EPIRUBICIN
     Indication: BREAST CANCER
     Dosage: 1ST CHEMOTHERAPY, PHARMORUBICIN + NS
     Route: 041
  6. ENDOXAN [Suspect]
     Active Substance: CYCLOPHOSPHAMIDE
     Dosage: DOSE RE-INTRODUCED, ENDOXAN + NS
     Route: 042
  7. 0.9% SODIUM CHLORIDE INJECTION [Suspect]
     Active Substance: SODIUM CHLORIDE
     Dosage: PHARMORUBICIN + NS, 1ST CHEMOTHERAPY
     Route: 041
  8. 0.9% SODIUM CHLORIDE INJECTION [Suspect]
     Active Substance: SODIUM CHLORIDE
     Dosage: PHARMORUBICIN + NS, DOSE RE-INTRODUCED
     Route: 041
  9. 0.9% SODIUM CHLORIDE INJECTION [Suspect]
     Active Substance: SODIUM CHLORIDE
     Indication: MEDICATION DILUTION
     Dosage: ENDOXAN + NS, 1ST CHEMOTHERAPY
     Route: 042
  10. 0.9% SODIUM CHLORIDE INJECTION [Suspect]
     Active Substance: SODIUM CHLORIDE
     Dosage: ENDOXAN + NS, DOSE RE-INTRODUCED
     Route: 042
  11. ENDOXAN [Suspect]
     Active Substance: CYCLOPHOSPHAMIDE
     Dosage: CYCLOPHOSPHAMIDE FOR INJECTION (ENDOXAN CTX) 750 MG + NS 35 ML, 2ND CHEMOTHERAPY
     Route: 042
     Dates: start: 20190202, end: 20190202
  12. PHARMORUBICIN [Suspect]
     Active Substance: EPIRUBICIN
     Dosage: EPIRUBICIN HYDROCHLORIDE FOR INJECTION (PHARMORUBICIN) 110 MG + NS 100 ML
     Route: 041
     Dates: start: 20190202, end: 20190202

REACTIONS (2)
  - Agranulocytosis [Recovered/Resolved]
  - Leukopenia [Recovered/Resolved]

NARRATIVE: CASE EVENT DATE: 20190209
